FAERS Safety Report 23771886 (Version 1)
Quarter: 2024Q2

REPORT INFORMATION
  Report Type: Spontaneous
  Country: US (occurrence: US)
  Receive Date: 20240423
  Receipt Date: 20240423
  Transmission Date: 20240716
  Serious: No
  Sender: FDA-Public Use
  Company Number: US-SCILEX PHARMACEUTICALS INC.-US-SOR-23-00018

PATIENT
  Sex: Female

DRUGS (2)
  1. ZTLIDO [Suspect]
     Active Substance: LIDOCAINE
     Indication: Pain
     Dosage: UNK, UNK
     Route: 065
     Dates: start: 20230414
  2. ZTLIDO [Suspect]
     Active Substance: LIDOCAINE
     Dosage: UNK, UNK
     Route: 065

REACTIONS (2)
  - Drug ineffective [Unknown]
  - Off label use [Unknown]
